FAERS Safety Report 19053906 (Version 1)
Quarter: 2021Q1

REPORT INFORMATION
  Report Type: Spontaneous
  Country: US (occurrence: US)
  Receive Date: 20210325
  Receipt Date: 20210325
  Transmission Date: 20210420
  Serious: No
  Sender: FDA-Public Use
  Company Number: US-SA-2021SA098009

PATIENT
  Sex: Female

DRUGS (9)
  1. VITAMIN D [VITAMIN D NOS] [Concomitant]
     Active Substance: VITAMIN D NOS
     Dosage: 10 UG
  2. VITAMINS NOS [Concomitant]
     Active Substance: VITAMINS
     Dosage: UNK
  3. LISINOPRIL. [Concomitant]
     Active Substance: LISINOPRIL
     Dosage: 5 MG
  4. NUVARING [Concomitant]
     Active Substance: ETHINYL ESTRADIOL\ETONOGESTREL
     Dosage: 12?.015MG VAG RING
  5. BIOTIN [Concomitant]
     Active Substance: BIOTIN
     Dosage: 10000 UG
  6. VITAMIN C [BIOFLAVONOIDS NOS;CALCIUM ASCORBATE;HESPERIDIN;RUTOSIDE;SOD [Concomitant]
     Dosage: 1000MG
  7. DUPIXENT [Suspect]
     Active Substance: DUPILUMAB
     Indication: DERMATITIS ATOPIC
     Dosage: UNK
     Route: 050
     Dates: start: 201912
  8. DIFFERIN [Concomitant]
     Active Substance: ADAPALENE
     Dosage: 1 %
  9. VITAMIN C [BIOFLAVONOIDS NOS;CALCIUM ASCORBATE;HESPERIDIN;RUTOSIDE;SOD [Concomitant]
     Dosage: 1000 MG

REACTIONS (1)
  - Dermatitis atopic [Unknown]
